FAERS Safety Report 9529519 (Version 1)
Quarter: 2013Q3

REPORT INFORMATION
  Report Type: Spontaneous
  Country: US (occurrence: US)
  Receive Date: 20130917
  Receipt Date: 20130917
  Transmission Date: 20140515
  Serious: Yes (Hospitalization)
  Sender: FDA-Public Use
  Company Number: US-B.I. PHARMACEUTICALS,INC./RIDGEFIELD-2013-BI-28428BP

PATIENT
  Sex: Male

DRUGS (5)
  1. COMBIVENT [Suspect]
     Indication: ASTHMA
     Dosage: DOSE PER APPLICATION: 18 MCG / 103 MCG;
     Route: 055
     Dates: end: 2013
  2. SINGULAIR [Concomitant]
     Route: 048
  3. ALBUTEROL NEBULIZER [Concomitant]
     Route: 055
  4. PREDISONE [Concomitant]
     Route: 048
  5. DULERA [Concomitant]
     Route: 055

REACTIONS (6)
  - Dyspnoea [Recovered/Resolved]
  - Pain [Not Recovered/Not Resolved]
  - Rheumatoid arthritis [Not Recovered/Not Resolved]
  - Hypoaesthesia [Not Recovered/Not Resolved]
  - Hypoaesthesia [Not Recovered/Not Resolved]
  - Off label use [Recovered/Resolved]
